FAERS Safety Report 25449667 (Version 1)
Quarter: 2025Q2

REPORT INFORMATION
  Report Type: Spontaneous
  Country: FR (occurrence: FR)
  Receive Date: 20250618
  Receipt Date: 20250618
  Transmission Date: 20250717
  Serious: Yes (Other)
  Sender: HIKMA
  Company Number: FR-HIKMA PHARMACEUTICALS USA INC.-FR-H14001-25-07615

PATIENT
  Age: 65 Year
  Sex: Male
  Weight: 58 kg

DRUGS (3)
  1. FLUOROURACIL [Suspect]
     Active Substance: FLUOROURACIL
     Indication: Pancreatic carcinoma
     Dosage: 1 DOSAGE FORM, QOW
     Route: 042
     Dates: start: 20250224, end: 20250422
  2. IRINOTECAN [Suspect]
     Active Substance: IRINOTECAN
     Indication: Pancreatic carcinoma
     Dosage: 1 DOSAGE FORM, QOW
     Route: 042
     Dates: start: 20250224, end: 20250422
  3. OXALIPLATIN [Suspect]
     Active Substance: OXALIPLATIN
     Indication: Pancreatic carcinoma
     Dosage: 1 DOSAGE FORM, QOW
     Route: 042
     Dates: start: 20250224, end: 20250422

REACTIONS (1)
  - Lewis-Sumner syndrome [Not Recovered/Not Resolved]

NARRATIVE: CASE EVENT DATE: 20250501
